FAERS Safety Report 5740840-X (Version None)
Quarter: 2008Q2

REPORT INFORMATION
  Report Type: 
  Country: None (occurrence: None)
  Receive Date: 20080516
  Receipt Date: 20080502
  Transmission Date: 20081010
  Serious: Yes (Hospitalization)
  Sender: FDA-Public Use
  Company Number: FR-GENENTECH-251459

PATIENT
  Sex: Male

DRUGS (14)
  1. RAPTIVA [Suspect]
     Indication: PSORIASIS
     Dosage: UNK, 1/WEEK
     Route: 058
     Dates: start: 20070601, end: 20071023
  2. AERIUS [Concomitant]
     Indication: DRUG USE FOR UNKNOWN INDICATION
     Route: 048
  3. CORTANCYL [Concomitant]
     Indication: DRUG USE FOR UNKNOWN INDICATION
     Route: 048
  4. ZOLPIDEM [Concomitant]
     Indication: INSOMNIA
     Route: 048
  5. MOPRAL [Concomitant]
     Indication: GASTROOESOPHAGEAL REFLUX DISEASE
     Route: 048
  6. FUROSEMIDE [Concomitant]
     Indication: RENAL FAILURE
     Route: 048
  7. INSULATARD [Concomitant]
     Indication: DIABETES MELLITUS
     Dosage: 26 IU, UNK
     Route: 058
  8. FOLIC ACID [Concomitant]
     Indication: DRUG USE FOR UNKNOWN INDICATION
     Dosage: UNK, UNK
     Route: 048
  9. ESIDRIX [Concomitant]
     Indication: OEDEMA
     Route: 048
  10. TAHOR [Concomitant]
     Indication: DYSLIPIDAEMIA
     Route: 048
  11. DAIVOBET [Concomitant]
     Indication: PSORIASIS
     Route: 061
     Dates: start: 20070913
  12. FONZYLANE [Concomitant]
     Indication: INTERMITTENT CLAUDICATION
     Route: 048
  13. FORLAX (FRANCE) [Concomitant]
     Indication: CONSTIPATION
     Route: 048
  14. ASPIRIN [Concomitant]
     Indication: PROPHYLAXIS
     Route: 048

REACTIONS (3)
  - PEMPHIGOID [None]
  - PSORIASIS [None]
  - RASH PAPULAR [None]
